FAERS Safety Report 8473238-4 (Version None)
Quarter: 2012Q2

REPORT INFORMATION
  Report Type: 
  Country: None (occurrence: None)
  Receive Date: 20120627
  Receipt Date: 20120619
  Transmission Date: 20120825
  Serious: Yes (Hospitalization, Disabling, Other)
  Sender: FDA-Public Use
  Company Number: US-MERCK-1103USA00910

PATIENT
  Age: 59 Year
  Sex: Female
  Weight: 59 kg

DRUGS (15)
  1. LEVOTHYROXINE SODIUM [Concomitant]
     Indication: HYPOTHYROIDISM
     Dosage: TO PRESENT
     Route: 065
     Dates: start: 19970101
  2. NICODERM [Concomitant]
     Indication: EX-TOBACCO USER
     Route: 065
  3. VITAMIN D (UNSPECIFIED) [Concomitant]
     Indication: OSTEOPOROSIS
     Route: 065
  4. FOSAMAX [Suspect]
     Indication: OSTEOPOROSIS
     Route: 048
     Dates: start: 20060801, end: 20080201
  5. SYNTHROID [Concomitant]
     Indication: HYPOTHYROIDISM
     Route: 048
  6. ZOCOR [Concomitant]
     Indication: HYPERLIPIDAEMIA
     Route: 048
  7. DILANTIN [Concomitant]
     Indication: CONVULSION
     Route: 065
  8. ALBUTEROL [Concomitant]
     Indication: CHRONIC OBSTRUCTIVE PULMONARY DISEASE
     Route: 055
  9. ALENDRONATE SODIUM [Suspect]
     Indication: OSTEOPOROSIS
     Route: 065
     Dates: start: 20080301, end: 20090101
  10. ALENDRONATE SODIUM [Suspect]
     Route: 048
     Dates: start: 20090101, end: 20100701
  11. DUONEB [Concomitant]
     Indication: CHRONIC OBSTRUCTIVE PULMONARY DISEASE
     Route: 065
  12. CHANTIX [Concomitant]
     Indication: EX-TOBACCO USER
     Route: 065
  13. FOSAMAX [Suspect]
     Route: 048
     Dates: start: 20100801, end: 20101101
  14. CALCIUM (UNSPECIFIED) [Concomitant]
     Indication: OSTEOPOROSIS
     Route: 048
  15. WELLBUTRIN [Concomitant]
     Indication: DEPRESSION
     Route: 065

REACTIONS (18)
  - STRESS FRACTURE [None]
  - IRRITABLE BOWEL SYNDROME [None]
  - LEUKOCYTOSIS [None]
  - BREAST CYST [None]
  - POST PROCEDURAL HAEMORRHAGE [None]
  - LOBAR PNEUMONIA [None]
  - CHRONIC OBSTRUCTIVE PULMONARY DISEASE [None]
  - FEMUR FRACTURE [None]
  - VITAMIN D DEFICIENCY [None]
  - CATARACT [None]
  - OSTEOPOROSIS [None]
  - FRACTURE [None]
  - BACK PAIN [None]
  - LOW TURNOVER OSTEOPATHY [None]
  - FIBROADENOMA OF BREAST [None]
  - DRUG INEFFECTIVE [None]
  - HYPERTENSION [None]
  - BRONCHITIS [None]
